FAERS Safety Report 4622441-X (Version None)
Quarter: 2005Q1

REPORT INFORMATION
  Report Type: 
  Country: None (occurrence: None)
  Receive Date: 20050317
  Receipt Date: 20040310
  Transmission Date: 20050727
  Serious: Yes (Hospitalization)
  Sender: FDA-Public Use
  Company Number: PHEH2004US02907

PATIENT
  Sex: Female

DRUGS (2)
  1. TRILEPTAL [Suspect]
     Indication: CONVULSION
  2. ESIDRIX [Suspect]

REACTIONS (2)
  - CONVULSION [None]
  - HYPONATRAEMIA [None]
